FAERS Safety Report 23767302 (Version 1)
Quarter: 2024Q2

REPORT INFORMATION
  Report Type: Other
  Country: TW (occurrence: TW)
  Receive Date: 20240422
  Receipt Date: 20240422
  Transmission Date: 20240716
  Serious: Yes (Other)
  Sender: FDA-Public Use
  Company Number: TW-002147023-NVSC2022TW237523

PATIENT
  Age: 83 Year
  Sex: Male

DRUGS (1)
  1. LUCENTIS [Suspect]
     Active Substance: RANIBIZUMAB
     Indication: Neovascular age-related macular degeneration
     Route: 047
     Dates: start: 20220812

REACTIONS (3)
  - Macular oedema [Unknown]
  - Retinal drusen [Unknown]
  - Visual impairment [Unknown]

NARRATIVE: CASE EVENT DATE: 20220909
